FAERS Safety Report 4384137-1 (Version None)
Quarter: 2004Q2

REPORT INFORMATION
  Report Type: 
  Country: None (occurrence: None)
  Receive Date: 20040623
  Receipt Date: 20040623
  Transmission Date: 20050107
  Serious: Yes (Hospitalization)
  Sender: FDA-Public Use
  Company Number: None

PATIENT
  Age: 44 Year
  Sex: Male
  Weight: 156.0374 kg

DRUGS (8)
  1. IRESSA [Suspect]
     Dosage: 250 MG QD ORAL
     Route: 048
     Dates: start: 20040609, end: 20041020
  2. CELEBREX [Suspect]
     Dosage: 400 MG BID ORAL
     Route: 048
     Dates: start: 20040609, end: 20041020
  3. DEXAMETHASONE [Concomitant]
  4. OXYCONTIN [Concomitant]
  5. DILAUDID [Concomitant]
  6. PROTONIX [Concomitant]
  7. LIDODERM [Concomitant]
  8. FENTANYL [Concomitant]

REACTIONS (5)
  - HEADACHE [None]
  - MALIGNANT NEOPLASM PROGRESSION [None]
  - METASTASES TO CENTRAL NERVOUS SYSTEM [None]
  - NAUSEA [None]
  - VOMITING [None]
